FAERS Safety Report 11385995 (Version 1)
Quarter: 2015Q3

REPORT INFORMATION
  Report Type: Spontaneous
  Country: US (occurrence: None)
  Receive Date: 20150813
  Receipt Date: 20150813
  Transmission Date: 20151125
  Serious: Yes (Life-Threatening, Hospitalization, Disabling, Other)
  Sender: FDA-Public Use
  Company Number: None

PATIENT
  Age: 50 Year
  Sex: Female
  Weight: 76.6 kg

DRUGS (10)
  1. LISINOPRIL (PRINIVIL) [Concomitant]
  2. FOSAPREPITANT 100 MG IN DEXTROSE 5 % (D5W) [Concomitant]
  3. ALTEPLASE 100MG GENENTECH [Suspect]
     Active Substance: ALTEPLASE
     Indication: ISCHAEMIC STROKE
     Dosage: BOLUS AND INFUSION
     Route: 042
     Dates: start: 20150802, end: 20150802
  4. FLUTICASONE-SALMETEROL (ADVAIR DISKUS) [Concomitant]
  5. ALBUTEROL SULFATE HFA 90 MCG/PUFF (FOR VENTOLIN) INHALER [Concomitant]
  6. GABAPENTIN (NEURONTIN) [Concomitant]
  7. ICATIBANT [Concomitant]
     Active Substance: ICATIBANT ACETATE
  8. SOLU-MEDROL [Concomitant]
     Active Substance: METHYLPREDNISOLONE SODIUM SUCCINATE
  9. SERTRALINE (ZOLOFT) [Concomitant]
  10. BENADRYL [Concomitant]
     Active Substance: DIPHENHYDRAMINE HYDROCHLORIDE

REACTIONS (3)
  - Tardive dyskinesia [None]
  - Haemorrhage [None]
  - Angioedema [None]

NARRATIVE: CASE EVENT DATE: 20150802
